FAERS Safety Report 9216978 (Version 1)
Quarter: 2013Q2

REPORT INFORMATION
  Report Type: Spontaneous
  Country: US (occurrence: US)
  Receive Date: 20130408
  Receipt Date: 20130408
  Transmission Date: 20140414
  Serious: No
  Sender: FDA-Public Use
  Company Number: US-PFIZER INC-2013109402

PATIENT
  Sex: Female

DRUGS (2)
  1. LYRICA [Suspect]
     Dosage: 75 MG, 1X/DAY
  2. LYRICA [Suspect]
     Dosage: 150 UNK, UNK

REACTIONS (2)
  - Dizziness [Unknown]
  - Pain in extremity [Unknown]
